FAERS Safety Report 8158013-2 (Version None)
Quarter: 2012Q1

REPORT INFORMATION
  Report Type: 
  Country: None (occurrence: None)
  Receive Date: 20120222
  Receipt Date: 20120214
  Transmission Date: 20120608
  Serious: Yes (Other)
  Sender: FDA-Public Use
  Company Number: PHHY2012IT004643

PATIENT
  Sex: Male

DRUGS (1)
  1. ZOMETA [Suspect]
     Indication: METASTATIC CARCINOMA OF THE BLADDER
     Dosage: 4 MG CYCLIC DOSE
     Route: 042
     Dates: start: 20091201, end: 20100501

REACTIONS (2)
  - PRIMARY SEQUESTRUM [None]
  - OSTEONECROSIS OF JAW [None]
